FAERS Safety Report 8076662-7 (Version None)
Quarter: 2012Q1

REPORT INFORMATION
  Report Type: 
  Country: None (occurrence: None)
  Receive Date: 20120125
  Receipt Date: 20120125
  Transmission Date: 20120608
  Serious: Yes (Hospitalization)
  Sender: FDA-Public Use
  Company Number: None

PATIENT

DRUGS (1)
  1. REGLAN METOCLOPRAMIDE VISTAPHARM, INC. SOLUTION ORAL 5 MG/ 5 ML UNIT-D [Suspect]
     Dosage: SOLUTION ORAL UNIT-DOSE CUP 10 ML
     Route: 048

REACTIONS (2)
  - CIRCUMSTANCE OR INFORMATION CAPABLE OF LEADING TO MEDICATION ERROR [None]
  - MEDICATION ERROR [None]
